FAERS Safety Report 8339514-0 (Version None)
Quarter: 2012Q2

REPORT INFORMATION
  Report Type: 
  Country: None (occurrence: None)
  Receive Date: 20120507
  Receipt Date: 20120427
  Transmission Date: 20120825
  Serious: Yes (Other)
  Sender: FDA-Public Use
  Company Number: PHHY2012FR016033

PATIENT
  Sex: Female
  Weight: 78 kg

DRUGS (7)
  1. CRESTOR [Concomitant]
     Indication: PULMONARY ARTERIAL HYPERTENSION
     Dosage: 5 MG, QD
     Dates: start: 20070101, end: 20120201
  2. PERINDOPRIL ERBUMINE [Concomitant]
     Indication: PULMONARY ARTERIAL HYPERTENSION
     Dosage: 10 MG, QD
     Dates: start: 20010101, end: 20110501
  3. FLUTICASONE PROPIONATE/SALMETEROL [Suspect]
     Indication: CHRONIC OBSTRUCTIVE PULMONARY DISEASE
  4. RASILEZ HCT [Suspect]
     Indication: HYPERTENSION
     Dosage: 1 DF, QD
     Route: 048
     Dates: start: 20110501, end: 20120201
  5. SPIRIVA [Suspect]
     Indication: CHRONIC OBSTRUCTIVE PULMONARY DISEASE
  6. LERCANIDIPINE [Concomitant]
     Indication: PULMONARY ARTERIAL HYPERTENSION
     Dosage: 10 MG, QD
     Dates: start: 20020101, end: 20120201
  7. CORTICOSTEROID NOS [Concomitant]

REACTIONS (4)
  - COUGH [None]
  - BRONCHIOLITIS [None]
  - INTERSTITIAL LUNG DISEASE [None]
  - DYSPNOEA EXERTIONAL [None]
